FAERS Safety Report 10465758 (Version 1)
Quarter: 2014Q3

REPORT INFORMATION
  Report Type: Spontaneous
  Country: US (occurrence: US)
  Receive Date: 20140921
  Receipt Date: 20140921
  Transmission Date: 20150326
  Serious: No
  Sender: FDA-Public Use
  Company Number: US-009507513-1409USA005405

PATIENT
  Sex: Female

DRUGS (1)
  1. DESOGEN [Suspect]
     Active Substance: DESOGESTREL\ETHINYL ESTRADIOL
     Indication: METRORRHAGIA
     Dosage: UNK
     Route: 048
     Dates: start: 1994

REACTIONS (2)
  - Menstruation normal [Unknown]
  - Drug administration error [Unknown]

NARRATIVE: CASE EVENT DATE: 1994
